FAERS Safety Report 7903426-4 (Version None)
Quarter: 2011Q4

REPORT INFORMATION
  Report Type: 
  Country: None (occurrence: None)
  Receive Date: 20111109
  Receipt Date: 20111107
  Transmission Date: 20120403
  Serious: No
  Sender: FDA-Public Use
  Company Number: US-TEVA-308175USA

PATIENT
  Sex: Female

DRUGS (2)
  1. COPAXONE [Suspect]
     Indication: MULTIPLE SCLEROSIS
     Route: 058
     Dates: start: 20110903
  2. TOLTERODINE TARTRATE [Concomitant]

REACTIONS (6)
  - ERYTHEMA [None]
  - NAUSEA [None]
  - IMMEDIATE POST-INJECTION REACTION [None]
  - SWELLING FACE [None]
  - DIZZINESS [None]
  - LIP SWELLING [None]
